FAERS Safety Report 13298249 (Version 3)
Quarter: 2018Q1

REPORT INFORMATION
  Report Type: Spontaneous
  Country: US (occurrence: US)
  Receive Date: 20170306
  Receipt Date: 20180103
  Transmission Date: 20180508
  Serious: No
  Sender: FDA-Public Use
  Company Number: US-TEVA-729989ACC

PATIENT
  Age: 63 Year
  Sex: Male
  Weight: 61.22 kg

DRUGS (2)
  1. MUCUS DM [Suspect]
     Active Substance: DEXTROMETHORPHAN HYDROBROMIDE\GUAIFENESIN
     Indication: COUGH
     Dosage: GUAIFENESIN 1200 MG, DEXTROMETHORPHAN HYDROBROMIDE 60MG
     Route: 048
     Dates: start: 20161225, end: 20161227
  2. MUCUS DM [Suspect]
     Active Substance: DEXTROMETHORPHAN HYDROBROMIDE\GUAIFENESIN
     Indication: INCREASED UPPER AIRWAY SECRETION
     Dosage: 2 DOSAGE FORMS DAILY;
     Dates: start: 201712, end: 20171217

REACTIONS (2)
  - Drug ineffective [Unknown]
  - Increased upper airway secretion [Recovered/Resolved]

NARRATIVE: CASE EVENT DATE: 201712
